FAERS Safety Report 5917558-3 (Version None)
Quarter: 2008Q4

REPORT INFORMATION
  Report Type: 
  Country: None (occurrence: None)
  Receive Date: 20081010
  Receipt Date: 20081010
  Transmission Date: 20090506
  Serious: No
  Sender: FDA-Public Use
  Company Number: None

PATIENT
  Age: 68 Year
  Sex: Female
  Weight: 56.6996 kg

DRUGS (1)
  1. FOSAMAX PLUS D [Suspect]
     Indication: FAMILIAL RISK FACTOR
     Dosage: 1 TABLET ONCE A WEEK PO
     Route: 048
     Dates: start: 20031001, end: 20080717

REACTIONS (3)
  - FEMUR FRACTURE [None]
  - IMPAIRED HEALING [None]
  - STRESS FRACTURE [None]
